FAERS Safety Report 4845466-8 (Version None)
Quarter: 2005Q4

REPORT INFORMATION
  Report Type: 
  Country: None (occurrence: None)
  Receive Date: 20051201
  Receipt Date: 20051115
  Transmission Date: 20060501
  Serious: Yes (Hospitalization)
  Sender: FDA-Public Use
  Company Number: SUS1-2005-00845

PATIENT
  Age: 9 Year
  Sex: Female

DRUGS (1)
  1. ADDERALL XR 30 [Suspect]
     Dosage: 15 MG, 1X/DAY:QD, ORAL
     Route: 048
     Dates: start: 20040101, end: 20051101

REACTIONS (4)
  - FEELING ABNORMAL [None]
  - INSOMNIA [None]
  - PHARMACEUTICAL PRODUCT COMPLAINT [None]
  - PSYCHOTIC DISORDER [None]
